FAERS Safety Report 4606602-1 (Version None)
Quarter: 2005Q2

REPORT INFORMATION
  Report Type: 
  Country: None (occurrence: None)
  Receive Date: 20050223
  Receipt Date: 20040430
  Transmission Date: 20051028
  Serious: Yes (Other)
  Sender: FDA-Public Use
  Company Number: WAES 0405USA00134

PATIENT
  Age: 76 Year
  Sex: Female

DRUGS (5)
  1. ZOCOR [Suspect]
     Dosage: 80 MG/DAILY/PO
     Route: 048
     Dates: end: 20040416
  2. CITRICAL [Concomitant]
  3. COZAAR [Concomitant]
  4. ASPIRIN [Concomitant]
  5. INSULIN [Concomitant]

REACTIONS (1)
  - BLOOD CREATINE PHOSPHOKINASE INCREASED [None]
